FAERS Safety Report 10068563 (Version 1)
Quarter: 2014Q2

REPORT INFORMATION
  Report Type: Spontaneous
  Country: AU (occurrence: AU)
  Receive Date: 20140409
  Receipt Date: 20140409
  Transmission Date: 20141212
  Serious: Yes (Other)
  Sender: FDA-Public Use
  Company Number: PHHY2014AU042463

PATIENT
  Age: 53 Year
  Sex: Female

DRUGS (2)
  1. LETROZOLE [Suspect]
     Dosage: UNK UKN, UNK
     Dates: start: 201207
  2. DENOSUMAB [Concomitant]

REACTIONS (3)
  - Hepatic lesion [Unknown]
  - Metastasis [Unknown]
  - Metastases to bone [Unknown]
